FAERS Safety Report 9518449 (Version 1)
Quarter: 2013Q1

REPORT INFORMATION
  Report Type: Spontaneous
  Country: US (occurrence: None)
  Receive Date: 20130305
  Receipt Date: 20130305
  Transmission Date: 20140127
  Serious: Yes (Hospitalization)
  Sender: FDA-Public Use
  Company Number: 163-21880-12121285

PATIENT
  Age: 66 Year
  Sex: Female

DRUGS (10)
  1. REVLIMID (LENALIDOMIDE) [Suspect]
     Indication: PLASMA CELL MYELOMA
     Route: 048
     Dates: start: 20121114
  2. ALLUPURINOL(ALLOPURINOL) [Concomitant]
  3. DEXAMETHASONE [Concomitant]
  4. DOCUSATE SODIUM(DOCUSATE SODIUM) [Concomitant]
  5. FENTANYL(FENTANYL) [Concomitant]
  6. HYDROCODONE BT (HYDROCODONE BITARTRATE) [Concomitant]
  7. ONDANSETRON HCL (ODANSETRON HYDROCHLORIDE) [Concomitant]
  8. POLYVITAMIN WITH IRON (POLYVITAMIN) [Concomitant]
  9. PROCHLORPERAZINE(PROCHLORPERAZINE) [Concomitant]
  10. SENNA(SENNA) [Concomitant]

REACTIONS (4)
  - Cancer pain [None]
  - Full blood count decreased [None]
  - Plasma cell myeloma [None]
  - Malignant neoplasm progression [None]
